FAERS Safety Report 15375844 (Version 2)
Quarter: 2018Q3

REPORT INFORMATION
  Report Type: Spontaneous
  Country: DE (occurrence: DE)
  Receive Date: 20180912
  Receipt Date: 20180920
  Transmission Date: 20181010
  Serious: Yes (Other)
  Sender: FDA-Public Use
  Company Number: DE-MYLANLABS-2018M1066571

PATIENT
  Sex: Female

DRUGS (5)
  1. TILIDINE [Suspect]
     Active Substance: TILIDINE
     Indication: RADICULOPATHY
     Dosage: UNK
  2. NALOXONE [Suspect]
     Active Substance: NALOXONE
     Indication: RADICULOPATHY
     Dosage: UNK
  3. LIDOCAINE. [Suspect]
     Active Substance: LIDOCAINE
     Indication: RADICULOPATHY
     Dosage: UNK
     Route: 061
  4. DULOXETINE. [Suspect]
     Active Substance: DULOXETINE
     Indication: RADICULOPATHY
     Dosage: UNK
  5. TAPENTADOL [Suspect]
     Active Substance: TAPENTADOL
     Indication: RADICULOPATHY
     Dosage: 300 MG, UNK

REACTIONS (3)
  - Drug ineffective for unapproved indication [Unknown]
  - Drug effect incomplete [Unknown]
  - Cognitive disorder [Unknown]
